FAERS Safety Report 5794304-8 (Version None)
Quarter: 2008Q2

REPORT INFORMATION
  Report Type: 
  Country: None (occurrence: None)
  Receive Date: 20080625
  Receipt Date: 20080604
  Transmission Date: 20081010
  Serious: No
  Sender: FDA-Public Use
  Company Number: ADE# 08-088

PATIENT
  Sex: Female

DRUGS (1)
  1. GABAPENTIN TABLETS, 600MG [Suspect]
     Dosage: 1 TABLET 4 TIMES DAILY

REACTIONS (2)
  - DIARRHOEA [None]
  - FLATULENCE [None]
